FAERS Safety Report 9948960 (Version 1)
Quarter: 2014Q1

REPORT INFORMATION
  Report Type: Spontaneous
  Country: MX (occurrence: MX)
  Receive Date: 20140304
  Receipt Date: 20140304
  Transmission Date: 20141002
  Serious: Yes (Hospitalization)
  Sender: FDA-Public Use
  Company Number: MX-GLENMARK GENERICS INC.-2014GMK008783

PATIENT
  Age: 46 Year
  Sex: Female

DRUGS (4)
  1. BONNETRIL [Suspect]
     Indication: INTERTRIGO CANDIDA
     Dosage: UNK
     Route: 061
  2. METFORMIN [Concomitant]
     Indication: DIABETES MELLITUS
     Dosage: UNK
  3. LINAGLIPTIN [Concomitant]
     Indication: DIABETES MELLITUS
     Dosage: UNK
  4. REPAGLINIDE [Concomitant]
     Indication: DIABETES MELLITUS
     Dosage: UNK

REACTIONS (1)
  - Dermatitis contact [Unknown]
